FAERS Safety Report 6104097-2 (Version None)
Quarter: 2009Q1

REPORT INFORMATION
  Report Type: 
  Country: None (occurrence: None)
  Receive Date: 20090305
  Receipt Date: 20090215
  Transmission Date: 20090719
  Serious: Yes (Other)
  Sender: FDA-Public Use
  Company Number: US-PFIZER INC-2008012057

PATIENT
  Sex: Male
  Weight: 72.562 kg

DRUGS (21)
  1. CHANTIX [Suspect]
     Indication: SMOKING CESSATION THERAPY
     Dosage: 1 MG, 2X/DAY
     Dates: start: 20071201
  2. CHANTIX [Suspect]
     Dosage: UNK
     Dates: start: 20090215
  3. GLIMEPIRIDE [Concomitant]
  4. PAXIL [Concomitant]
  5. OMEPRAZOLE [Concomitant]
     Dosage: UNK
     Route: 048
  6. OMEPRAZOLE [Concomitant]
     Route: 048
  7. GLYBURIDE [Concomitant]
  8. HYDROCHLOROTHIAZIDE [Concomitant]
     Dosage: UNK
     Route: 048
  9. HYDROCHLOROTHIAZIDE [Concomitant]
     Route: 048
  10. SIMVASTATIN [Concomitant]
     Dosage: UNK
     Route: 048
  11. SIMVASTATIN [Concomitant]
     Route: 048
  12. PROSCAR [Concomitant]
  13. METFORMIN [Concomitant]
  14. ACETYLSALICYLIC ACID [Concomitant]
  15. PLAVIX [Concomitant]
     Route: 048
  16. PLAVIX [Concomitant]
     Route: 048
  17. TERAZOSIN HCL [Concomitant]
  18. FLUOXETINE [Concomitant]
     Dosage: UNK
     Route: 048
  19. GLIPIZIDE [Concomitant]
     Dosage: UNK
     Route: 048
  20. SITAGLIPTIN [Concomitant]
     Dosage: UNK
     Route: 048
  21. AVODART [Concomitant]
     Dosage: UNK
     Route: 048

REACTIONS (5)
  - BALANCE DISORDER [None]
  - DIZZINESS [None]
  - DYSSTASIA [None]
  - FALL [None]
  - LOSS OF CONSCIOUSNESS [None]
